FAERS Safety Report 24392172 (Version 1)
Quarter: 2024Q4

REPORT INFORMATION
  Report Type: Spontaneous
  Country: US (occurrence: None)
  Receive Date: 20241002
  Receipt Date: 20241002
  Transmission Date: 20250115
  Serious: No
  Sender: Public
  Company Number: None

PATIENT
  Age: 54 Year
  Sex: Male
  Weight: 107.1 kg

DRUGS (7)
  1. VTAMA [Suspect]
     Active Substance: TAPINAROF
     Indication: Psoriasis
     Dosage: OTHER QUANTITY : 1 PATCH(ES);?
     Route: 061
     Dates: start: 20240915, end: 20240921
  2. TELMISARTAN [Concomitant]
  3. CLOBETASOL [Concomitant]
  4. Desonide Cream [Concomitant]
  5. Cyclopirox Olamine [Concomitant]
  6. Vitamin Adults 50+ [Concomitant]
  7. FISH OIL [Concomitant]

REACTIONS (2)
  - Abdominal discomfort [None]
  - Headache [None]

NARRATIVE: CASE EVENT DATE: 20241001
